FAERS Safety Report 15864965 (Version 1)
Quarter: 2019Q1

REPORT INFORMATION
  Report Type: Spontaneous
  Country: FR (occurrence: FR)
  Receive Date: 20190124
  Receipt Date: 20190124
  Transmission Date: 20190417
  Serious: Yes (Other)
  Sender: FDA-Public Use
  Company Number: FR-JAZZ-2019-FR-000685

PATIENT
  Age: 64 Year
  Sex: Female

DRUGS (3)
  1. VYXEOS [Suspect]
     Active Substance: CYTARABINE\DAUNORUBICIN
     Dosage: DAY 2 INDUCTION CYCLE
     Dates: start: 20181206, end: 20181206
  2. VYXEOS [Suspect]
     Active Substance: CYTARABINE\DAUNORUBICIN
     Dosage: DAY 3 INDUCTION CYCLE
     Dates: start: 20181208, end: 20181208
  3. VYXEOS [Suspect]
     Active Substance: CYTARABINE\DAUNORUBICIN
     Indication: PRODUCT USED FOR UNKNOWN INDICATION
     Dosage: DAY 1 INDUCTION CYCLE
     Dates: start: 20181204, end: 20181204

REACTIONS (6)
  - Streptococcal urinary tract infection [Unknown]
  - Cough [Unknown]
  - Cellulitis [Unknown]
  - Hyperthermia [Recovered/Resolved]
  - Epistaxis [Unknown]
  - Swelling face [Unknown]

NARRATIVE: CASE EVENT DATE: 20181212
